FAERS Safety Report 10378075 (Version 1)
Quarter: 2014Q3

REPORT INFORMATION
  Report Type: Spontaneous
  Country: IT (occurrence: IT)
  Receive Date: 20140812
  Receipt Date: 20140812
  Transmission Date: 20150326
  Serious: Yes (Other)
  Sender: FDA-Public Use
  Company Number: IT-AMGEN-ITASP2014060300

PATIENT
  Age: 69 Year
  Sex: Male

DRUGS (21)
  1. FERLIXIT [Concomitant]
     Active Substance: FERROUS GLUCONATE
     Dosage: 62.5 MG/ML, UNK
  2. ACETAMINOPHEN. [Concomitant]
     Active Substance: ACETAMINOPHEN
     Dosage: 1000 MG, UNK
     Route: 048
  3. TRENTAL [Concomitant]
     Active Substance: PENTOXIFYLLINE
     Dosage: 400 MG, UNK
     Route: 048
  4. FUNZOL [Concomitant]
     Dosage: 1000 MG, UNK
     Route: 048
  5. ARANESP [Suspect]
     Active Substance: DARBEPOETIN ALFA
     Indication: ANAEMIA
     Dosage: 60 MUG, QWK
     Route: 042
     Dates: start: 20131118
  6. CARDIRENE [Concomitant]
     Active Substance: ASPIRIN DL-LYSINE
     Dosage: 160 MG, UNK
  7. LANSOPRAZOLE. [Concomitant]
     Active Substance: LANSOPRAZOLE
     Dosage: 30 MG, UNK
  8. DIBASE [Concomitant]
     Active Substance: CHOLECALCIFEROL
     Dosage: 10000 IU/ML, UNK
  9. EZETROL [Concomitant]
     Active Substance: EZETIMIBE
     Dosage: 10 MG, UNK
     Route: 048
  10. LANTUS [Concomitant]
     Active Substance: INSULIN GLARGINE
  11. SPIRAMYCIN [Concomitant]
     Active Substance: SPIRAMYCIN
  12. RENVELA [Concomitant]
     Active Substance: SEVELAMER CARBONATE
  13. TRINIPLAS [Concomitant]
     Dosage: 10 MG, QD
  14. ZEMPLAR [Concomitant]
     Active Substance: PARICALCITOL
     Dosage: 5 MUG/ML, UNK
  15. NICETILE [Concomitant]
     Active Substance: ACETYLCARNITINE HYDROCHLORIDE
     Dosage: 500 MG, UNK
     Route: 048
  16. ESKIM [Concomitant]
     Active Substance: OMEGA-3 FATTY ACIDS
     Dosage: 1000 MG, UNK
  17. MIMPARA [Concomitant]
     Active Substance: CINACALCET HYDROCHLORIDE
     Route: 048
  18. NORMIX [Concomitant]
     Active Substance: RIFAXIMIN
     Dosage: 200 MG, UNK
     Route: 048
  19. NOVORAPID [Concomitant]
     Active Substance: INSULIN ASPART
     Dosage: 100 UNK, UNK
  20. LASIX [Concomitant]
     Active Substance: FUROSEMIDE
     Dosage: 500 MG, UNK
  21. LYRICA [Concomitant]
     Active Substance: PREGABALIN
     Dosage: 50 MG, UNK

REACTIONS (2)
  - Hypertensive crisis [Recovered/Resolved]
  - Epistaxis [Recovered/Resolved]

NARRATIVE: CASE EVENT DATE: 20140519
